FAERS Safety Report 7968950-7 (Version None)
Quarter: 2011Q4

REPORT INFORMATION
  Report Type: 
  Country: None (occurrence: None)
  Receive Date: 20111209
  Receipt Date: 20111206
  Transmission Date: 20120403
  Serious: Yes (Death, Hospitalization, Other)
  Sender: FDA-Public Use
  Company Number: US-AMGEN-USASP2011064170

PATIENT
  Age: 73 Year
  Sex: Female
  Weight: 94 kg

DRUGS (6)
  1. MORPHINE [Concomitant]
     Indication: PAIN
     Dosage: 10 MG, UNK
  2. CORTICOSTEROIDS [Concomitant]
     Indication: IDIOPATHIC THROMBOCYTOPENIC PURPURA
  3. METHYLPREDNISOLONE [Concomitant]
     Indication: PLATELET COUNT DECREASED
     Dosage: 100 MG, UNK
     Route: 042
  4. NPLATE [Suspect]
     Indication: IDIOPATHIC THROMBOCYTOPENIC PURPURA
     Dosage: 240 MUG, UNK
     Route: 058
     Dates: start: 20110617, end: 20110719
  5. LOVENOX [Concomitant]
     Indication: DEEP VEIN THROMBOSIS
     Dosage: 80 MG, UNK
     Route: 058
  6. NPLATE [Suspect]
     Indication: PLATELET COUNT DECREASED

REACTIONS (3)
  - HEPATIC FAILURE [None]
  - HEPATIC CIRRHOSIS [None]
  - THROMBOCYTOPENIA [None]
